FAERS Safety Report 7135194-0 (Version None)
Quarter: 2010Q4

REPORT INFORMATION
  Report Type: 
  Country: None (occurrence: None)
  Receive Date: 20101203
  Receipt Date: 20101117
  Transmission Date: 20110411
  Serious: Yes (Other)
  Sender: FDA-Public Use
  Company Number: US-PFIZER INC-HQWYE804203FEB04

PATIENT
  Sex: Male

DRUGS (4)
  1. EFFEXOR [Suspect]
     Indication: SOCIAL PHOBIA
     Dosage: 75 MG, 1X/DAY
     Route: 048
     Dates: start: 20010101
  2. EFFEXOR [Suspect]
     Dosage: TITRATED UPT TO 300 MG DAILY OVER THE COURSE OF THREE WEEKS
     Route: 048
  3. PAXIL [Suspect]
     Indication: SOCIAL PHOBIA
     Dosage: 20 MG, 1X/DAY
     Dates: start: 20000306
  4. PAXIL [Suspect]
     Indication: DEPRESSION
     Dosage: 40 MG, 1X/DAY
     Dates: end: 20010101

REACTIONS (9)
  - AGGRESSION [None]
  - AMNESIA [None]
  - DIZZINESS [None]
  - FEELING ABNORMAL [None]
  - HEADACHE [None]
  - HOMICIDAL IDEATION [None]
  - PARAESTHESIA [None]
  - SOMNOLENCE [None]
  - SUICIDAL IDEATION [None]
